FAERS Safety Report 9081831 (Version 2)
Quarter: 2014Q2

REPORT INFORMATION
  Report Type: Spontaneous
  Country: US (occurrence: US)
  Receive Date: 20130130
  Receipt Date: 20140617
  Transmission Date: 20141212
  Serious: Yes (Other)
  Sender: FDA-Public Use
  Company Number: PHHY2013US006509

PATIENT
  Age: 20 Day
  Sex: Male

DRUGS (6)
  1. METHADONE [Suspect]
     Dosage: 39 UG, Q6H
  2. METHADONE [Suspect]
     Dosage: 7.8 MG, UNK
  3. FENTANYL [Concomitant]
     Indication: ANALGESIC THERAPY
     Dosage: 19 UG/KG/H
  4. FENTANYL [Concomitant]
     Indication: SEDATION
     Dosage: 10 UG/KG/H
  5. MORPHINE [Concomitant]
     Indication: ANALGESIC THERAPY
     Dosage: 0.1 MG/KG, UNK
     Route: 042
  6. MORPHINE [Concomitant]
     Indication: SEDATION

REACTIONS (7)
  - Clonus [Recovered/Resolved]
  - Early infantile epileptic encephalopathy with burst-suppression [Recovered/Resolved]
  - Neonatal respiratory depression [Recovered/Resolved]
  - Hypoxia [Recovered/Resolved]
  - Accidental overdose [Recovered/Resolved]
  - Drug level increased [Recovered/Resolved]
  - Drug administration error [Unknown]
